FAERS Safety Report 9104421 (Version 5)
Quarter: 2013Q2

REPORT INFORMATION
  Report Type: Spontaneous
  Country: US (occurrence: US)
  Receive Date: 20130220
  Receipt Date: 20130503
  Transmission Date: 20140414
  Serious: No
  Sender: FDA-Public Use
  Company Number: US-009507513-1302USA008301

PATIENT
  Sex: Female

DRUGS (3)
  1. PEGINTRON [Suspect]
     Indication: HEPATITIS C
     Dosage: UNK
     Dates: start: 20130210
  2. REBETOL [Suspect]
     Indication: HEPATITIS C
     Dosage: UNK
     Route: 048
     Dates: start: 20130210
  3. VICTRELIS [Suspect]
     Indication: HEPATITIS C
     Dosage: UNK
     Route: 048
     Dates: start: 20130310

REACTIONS (14)
  - Injection site reaction [Unknown]
  - Muscle spasms [Unknown]
  - Pollakiuria [Unknown]
  - Memory impairment [Unknown]
  - Insomnia [Unknown]
  - Injection site reaction [Unknown]
  - Dry skin [Unknown]
  - Pruritus [Unknown]
  - Asthenia [Unknown]
  - Tooth fracture [Unknown]
  - Infection [Unknown]
  - Fatigue [Unknown]
  - Leukopenia [Recovering/Resolving]
  - White blood cell count decreased [Recovering/Resolving]
